FAERS Safety Report 4263372-7 (Version None)
Quarter: 2004Q1

REPORT INFORMATION
  Report Type: 
  Country: None (occurrence: None)
  Receive Date: 20040105
  Receipt Date: 20031222
  Transmission Date: 20041129
  Serious: Yes (Other)
  Sender: FDA-Public Use
  Company Number: WAES 0312USA02304

PATIENT
  Age: 67 Year
  Sex: Female

DRUGS (5)
  1. COREG [Concomitant]
  2. LEVOXYL [Concomitant]
  3. PRINIVIL [Suspect]
     Route: 048
  4. ZOCOR [Concomitant]
  5. VITAMINS (UNSPECIFIED) [Concomitant]

REACTIONS (1)
  - PANCYTOPENIA [None]
